FAERS Safety Report 7180325-X (Version None)
Quarter: 2010Q4

REPORT INFORMATION
  Report Type: 
  Country: None (occurrence: None)
  Receive Date: 20101209
  Receipt Date: 20101126
  Transmission Date: 20110411
  Serious: Yes (Other)
  Sender: FDA-Public Use
  Company Number: 2010AP002497

PATIENT
  Age: 88 Year
  Sex: Male

DRUGS (11)
  1. MIRTAZAPINE [Suspect]
     Indication: DEPRESSION
     Dosage: 30 MG, PM; 45 MG; 30 MG
  2. FLUOXETINE [Concomitant]
  3. TRAZODONE [Concomitant]
  4. ACETYLSALICYLIC ACID SRT [Concomitant]
  5. CARVEDILOL [Concomitant]
  6. DIGOXIN [Concomitant]
  7. LISINOPRIL [Concomitant]
  8. SIMVASTATIN [Concomitant]
  9. NICOTINIC ACID [Concomitant]
  10. PSYLLIUM [Concomitant]
  11. MAGNESIUM HYDROZIDE [Concomitant]

REACTIONS (1)
  - HALLUCINATION, AUDITORY [None]
